FAERS Safety Report 6710332-X (Version None)
Quarter: 2010Q2

REPORT INFORMATION
  Report Type: 
  Country: None (occurrence: None)
  Receive Date: 20100504
  Receipt Date: 20100424
  Transmission Date: 20101027
  Serious: Yes (Other)
  Sender: FDA-Public Use
  Company Number: PHHY2010MX26812

PATIENT
  Age: 41 Year
  Sex: Female

DRUGS (4)
  1. TRILEPTAL [Suspect]
     Indication: EPILEPSY
     Dosage: 02 TABLETS (600 MG), DAILY
     Route: 048
     Dates: start: 20090101
  2. RIVOTRIL [Concomitant]
     Dosage: UNK
  3. MILNACIPRAN [Concomitant]
     Dosage: UNK
  4. CADUET [Concomitant]
     Dosage: UNK

REACTIONS (3)
  - FACIAL PALSY [None]
  - HEAD DISCOMFORT [None]
  - HEADACHE [None]
